FAERS Safety Report 14337615 (Version 1)
Quarter: 2017Q4

REPORT INFORMATION
  Report Type: Spontaneous
  Country: US (occurrence: US)
  Receive Date: 20171228
  Receipt Date: 20171228
  Transmission Date: 20180321
  Serious: Yes (Other)
  Sender: FDA-Public Use
  Company Number: None

PATIENT
  Age: 36 Year
  Sex: Female
  Weight: 88.45 kg

DRUGS (1)
  1. SUBOXONE [Suspect]
     Active Substance: BUPRENORPHINE HYDROCHLORIDE\NALOXONE HYDROCHLORIDE
     Indication: SUBSTANCE USE DISORDER
     Route: 060
     Dates: start: 20150107, end: 20150507

REACTIONS (2)
  - Stomatitis [None]
  - Headache [None]

NARRATIVE: CASE EVENT DATE: 20150107
